FAERS Safety Report 23567686 (Version 2)
Quarter: 2024Q2

REPORT INFORMATION
  Report Type: Spontaneous
  Country: US (occurrence: US)
  Receive Date: 20240226
  Receipt Date: 20240510
  Transmission Date: 20240716
  Serious: Yes (Other)
  Sender: FDA-Public Use
  Company Number: US-BRISTOL-MYERS SQUIBB COMPANY-2024-027709

PATIENT
  Age: 77 Year
  Sex: Female

DRUGS (2)
  1. REVLIMID [Suspect]
     Active Substance: LENALIDOMIDE
     Indication: Plasma cell myeloma
     Dosage: TAKE 1 CAPSULE BY MOUTH EVERY 24 HOURS START ON DAY 1 THROUGH AND INCLUDING 21 (21 DOSES) PER 28 DAY
     Route: 048
  2. REVLIMID [Suspect]
     Active Substance: LENALIDOMIDE
     Indication: Essential hypertension

REACTIONS (9)
  - Illness [Recovering/Resolving]
  - Respiratory tract congestion [Recovering/Resolving]
  - Blood pressure abnormal [Recovering/Resolving]
  - Pain [Recovering/Resolving]
  - Fatigue [Recovering/Resolving]
  - Decreased appetite [Recovering/Resolving]
  - Nasopharyngitis [Recovering/Resolving]
  - Bone disorder [Recovering/Resolving]
  - Dysphagia [Recovering/Resolving]
